FAERS Safety Report 7304661-9 (Version None)
Quarter: 2011Q1

REPORT INFORMATION
  Report Type: 
  Country: None (occurrence: None)
  Receive Date: 20110222
  Receipt Date: 20110211
  Transmission Date: 20110831
  Serious: Yes (Life-Threatening, Hospitalization)
  Sender: FDA-Public Use
  Company Number: GB-AMGEN-GBRSP2011009452

PATIENT
  Age: 29 Year
  Sex: Female

DRUGS (8)
  1. CO-CODAMOL [Concomitant]
     Dosage: UNK UNK, UNK
  2. MELOXICAM [Concomitant]
     Dosage: UNK UNK, UNK
  3. METHOTREXATE [Concomitant]
     Dosage: UNK UNK, UNK
  4. ETANERCEPT [Suspect]
     Indication: RHEUMATOID ARTHRITIS
     Dosage: 50 MG, WEEKLY
     Route: 058
     Dates: start: 20100701
  5. FOLIC ACID [Concomitant]
     Dosage: UNK UNK, UNK
  6. OMEPRAZOLE [Concomitant]
     Dosage: UNK UNK, UNK
  7. IMPLANON [Concomitant]
     Dosage: UNK UNK, UNK
  8. PREDNISOLONE [Concomitant]
     Dosage: UNK UNK, UNK

REACTIONS (2)
  - NECK PAIN [None]
  - ARTERY DISSECTION [None]
